FAERS Safety Report 4323773-5 (Version None)
Quarter: 2004Q1

REPORT INFORMATION
  Report Type: 
  Country: None (occurrence: None)
  Receive Date: 20040324
  Receipt Date: 20040324
  Transmission Date: 20041129
  Serious: Yes (Hospitalization)
  Sender: FDA-Public Use
  Company Number: None

PATIENT
  Sex: Female
  Weight: 68.4932 kg

DRUGS (3)
  1. IRESSA 250 MG QD (SEE IMAGE PER FDA REP) [Suspect]
     Dosage: 56.25 MG/M2 IV (101.25)
     Route: 042
     Dates: start: 20040302
  2. DOCETAXEL  15 MG/ M2 X1-7 (7 WKS) [Suspect]
  3. RADIATION THERAPY DAILY C1-7 (7 WKS) [Suspect]
     Dosage: TOTAL 70 GY
     Dates: start: 20031229, end: 20040218

REACTIONS (5)
  - DEHYDRATION [None]
  - DIARRHOEA [None]
  - NAUSEA [None]
  - OESOPHAGITIS [None]
  - VOMITING [None]
